FAERS Safety Report 18559049 (Version 1)
Quarter: 2020Q4

REPORT INFORMATION
  Report Type: Spontaneous
  Country: CN (occurrence: CN)
  Receive Date: 20201130
  Receipt Date: 20201130
  Transmission Date: 20210114
  Serious: Yes (Other)
  Sender: FDA-Public Use
  Company Number: CN-SA-2020SA341977

PATIENT

DRUGS (3)
  1. LEVOFLOXACIN. [Suspect]
     Active Substance: LEVOFLOXACIN
     Indication: URINARY TRACT INFECTION
     Dosage: 0.5 G, QD
     Route: 048
     Dates: start: 20200913, end: 20200917
  2. VILDAGLIPTIN [Suspect]
     Active Substance: VILDAGLIPTIN
     Indication: DIABETES MELLITUS
     Dosage: 50 MG, BID
     Route: 048
     Dates: start: 20200912, end: 20200920
  3. GLIMEPIRIDE. [Suspect]
     Active Substance: GLIMEPIRIDE
     Indication: DIABETES MELLITUS
     Dosage: 1 MG, QD
     Route: 048
     Dates: start: 20200911, end: 20200913

REACTIONS (3)
  - Liver injury [Recovering/Resolving]
  - Ocular icterus [Recovering/Resolving]
  - Pruritus [Recovering/Resolving]

NARRATIVE: CASE EVENT DATE: 20200919
